FAERS Safety Report 4742989-7 (Version None)
Quarter: 2005Q3

REPORT INFORMATION
  Report Type: 
  Country: None (occurrence: None)
  Receive Date: 20050811
  Receipt Date: 20050629
  Transmission Date: 20060218
  Serious: Yes (Death, Hospitalization)
  Sender: FDA-Public Use
  Company Number: US-BRISTOL-MYERS SQUIBB COMPANY-13020714

PATIENT
  Age: 51 Year
  Sex: Male
  Weight: 81 kg

DRUGS (11)
  1. CETUXIMAB [Suspect]
     Indication: NON-SMALL CELL LUNG CANCER
     Dosage: INITIAL TX DATE: 27-MAY-05.  PT HAD BEEN WITHDRAWN FROM STUDY ON 20-JUN-05 DUE TO PD.
     Route: 042
     Dates: start: 20050613, end: 20050613
  2. CARBOPLATIN [Suspect]
     Indication: NON-SMALL CELL LUNG CANCER
     Dosage: INITIAL TX DATE: 27-MAY-05.  PT HAD BEEN WITHDRAWN FROM STUDY ON 20-JUN-05 DUE TO PD.
     Route: 042
     Dates: start: 20050613, end: 20050613
  3. PACLITAXEL [Suspect]
     Indication: NON-SMALL CELL LUNG CANCER
     Dosage: INITIAL TX DATE: 27-MAY-05. PT HAD BEEN WITHDRAWN FROM STUDY ON 20-JUN-05 DUE TO PD.
     Route: 042
     Dates: start: 20050613, end: 20050613
  4. RADIATION THERAPY [Suspect]
     Indication: NON-SMALL CELL LUNG CANCER
     Dosage: INITIAL TX DATE: 27-MAY-05.  DOSE: 63 GY/7 WEEKS/35 DAILY FRACTIONS.
  5. ATIVAN [Concomitant]
  6. COUMADIN [Concomitant]
  7. HYDROCHLOROTHIAZIDE [Concomitant]
  8. MORPHINE [Concomitant]
  9. PREDNISONE [Concomitant]
  10. PROTONIX [Concomitant]
  11. TYLENOL (CAPLET) [Concomitant]

REACTIONS (11)
  - ACTIVATED PARTIAL THROMBOPLASTIN TIME PROLONGED [None]
  - BLOOD CHLORIDE DECREASED [None]
  - BLOOD SODIUM DECREASED [None]
  - DISEASE PROGRESSION [None]
  - EMBOLISM [None]
  - HAEMOGLOBIN DECREASED [None]
  - MALIGNANT NEOPLASM PROGRESSION [None]
  - PALPITATIONS [None]
  - PULMONARY EMBOLISM [None]
  - TACHYCARDIA [None]
  - THROMBOSIS [None]
